FAERS Safety Report 8255342-9 (Version None)
Quarter: 2012Q1

REPORT INFORMATION
  Report Type: 
  Country: None (occurrence: None)
  Receive Date: 20120319
  Receipt Date: 20120301
  Transmission Date: 20120608
  Serious: Yes (Life-Threatening, Hospitalization)
  Sender: FDA-Public Use
  Company Number: 2012000052

PATIENT
  Age: 56 Year
  Sex: Male

DRUGS (12)
  1. DIAMICRON (GLICLAZIDE) [Suspect]
     Indication: TYPE 2 DIABETES MELLITUS
     Dosage: 30 MG, QD, ORAL
     Route: 048
  2. PERINDOPRIL ERBUMINE [Suspect]
     Dosage: 2.5 MG
     Dates: start: 20091201
  3. ACEON [Suspect]
     Dosage: 2.5 MG,QD,ORAL
     Route: 048
  4. BISOPROLOL FUMARATE [Suspect]
     Indication: CONGESTIVE CARDIOMYOPATHY
     Dosage: 2.5 MG, QD, ORAL
     Route: 048
     Dates: start: 20091201
  5. ALLOPURINOL [Suspect]
     Indication: HYPERURICAEMIA
     Dosage: 300 MG, QD, ORAL
     Route: 048
  6. FENOFIBRATE [Suspect]
     Indication: HYPERTRIGLYCERIDAEMIA
     Dosage: 200 MG, QD, ORAL
     Route: 048
  7. JANUVIA [Suspect]
     Indication: TYPE 2 DIABETES MELLITUS
     Dosage: 100 MG, QD, ORAL
     Route: 048
     Dates: start: 20091001
  8. KAYEXALATE [Suspect]
     Indication: HYPERKALAEMIA
     Dosage: 1 UNIT EVERY 2 WEEKS, ORAL
     Route: 048
     Dates: start: 20100501
  9. ASPIRIN [Suspect]
     Indication: CONGESTIVE CARDIOMYOPATHY
     Dosage: 75 MG, QD, ORAL
     Route: 048
     Dates: start: 20091201
  10. ACTOS [Suspect]
     Indication: TYPE 2 DIABETES MELLITUS
     Dosage: 30 MG, QD, ORAL
     Route: 048
     Dates: start: 20060301, end: 20100201
  11. MINIRIN [Suspect]
     Indication: DIABETES INSIPIDUS
     Dosage: 100 UG, TID, ORAL
     Route: 048
     Dates: start: 19950101
  12. PRAZOSIN HCL [Suspect]
     Indication: HYPERTENSION
     Dosage: 5 MG, QD, ORAL
     Route: 048
     Dates: end: 20100201

REACTIONS (2)
  - BLADDER TRANSITIONAL CELL CARCINOMA STAGE II [None]
  - CARDIOMYOPATHY [None]
